FAERS Safety Report 23521939 (Version 1)
Quarter: 2024Q1

REPORT INFORMATION
  Report Type: Spontaneous
  Country: US (occurrence: None)
  Receive Date: 20240213
  Receipt Date: 20240213
  Transmission Date: 20240410
  Serious: Yes (Hospitalization, Other)
  Sender: FDA-Public Use
  Company Number: None

PATIENT
  Age: 86 Year
  Sex: Male
  Weight: 66.5 kg

DRUGS (2)
  1. KORSUVA [Suspect]
     Active Substance: DIFELIKEFALIN ACETATE
     Indication: Pruritus
     Dosage: OTHER FREQUENCY : THREE TIMES A WEEK;?
     Route: 010
     Dates: start: 20240208, end: 20240208
  2. KORSUVA [Suspect]
     Active Substance: DIFELIKEFALIN ACETATE
     Indication: Chronic kidney disease

REACTIONS (4)
  - Dizziness [None]
  - Balance disorder [None]
  - Syncope [None]
  - Fall [None]

NARRATIVE: CASE EVENT DATE: 20240208
